FAERS Safety Report 5756097-X (Version None)
Quarter: 2008Q2

REPORT INFORMATION
  Report Type: 
  Country: None (occurrence: None)
  Receive Date: 20080602
  Receipt Date: 20080508
  Transmission Date: 20081010
  Serious: No
  Sender: FDA-Public Use
  Company Number: US-BOEHRINGER INGELHEIM GMBH, GERMANY-2008-BP-04965BP

PATIENT
  Sex: Male

DRUGS (8)
  1. FLOMAX [Suspect]
     Indication: PROSTATE CANCER
     Route: 048
     Dates: start: 20070101
  2. FLOMAX [Suspect]
     Indication: NOCTURIA
  3. ATENOLOL [Concomitant]
     Indication: HYPERTENSION
  4. TOPIRAMATE [Concomitant]
  5. FORTICAL [Concomitant]
  6. OYSCO 500 + D [Concomitant]
  7. MULTI-VITAMIN [Concomitant]
  8. GLUCOSAMIN-CHONDROITIN [Concomitant]

REACTIONS (2)
  - DRUG INEFFECTIVE [None]
  - NOCTURIA [None]
